FAERS Safety Report 19382353 (Version 2)
Quarter: 2021Q2

REPORT INFORMATION
  Report Type: Report from Study
  Country: DE (occurrence: DE)
  Receive Date: 20210607
  Receipt Date: 20210609
  Transmission Date: 20210717
  Serious: Yes (Hospitalization)
  Sender: FDA-Public Use
  Company Number: DE-CELGENEUS-DEU-20210600007

PATIENT
  Age: 67 Year
  Sex: Female
  Weight: 62 kg

DRUGS (18)
  1. DERMATOP [Concomitant]
     Active Substance: PREDNICARBATE
     Indication: RASH
     Route: 061
     Dates: start: 20210304
  2. CARBOPLATIN. [Suspect]
     Active Substance: CARBOPLATIN
     Indication: NON-SMALL CELL LUNG CANCER STAGE IV
     Dosage: AUC 6MG/ML/MIN
     Route: 042
     Dates: start: 20210212, end: 20210331
  3. ALLOPURINOL. [Concomitant]
     Active Substance: ALLOPURINOL
     Indication: HYPERURICAEMIA
     Dosage: 100 MILLIGRAM
     Route: 048
     Dates: start: 20210219
  4. LOPERAMID [Concomitant]
     Active Substance: LOPERAMIDE
     Indication: DIARRHOEA
     Dosage: 8 MILLIGRAM
     Route: 048
     Dates: start: 20210225
  5. FORTIMEL COMPACT [Concomitant]
     Indication: WEIGHT DECREASED
     Dosage: 125 MILLILITER
     Route: 048
     Dates: start: 20210406
  6. RAMIPRIL. [Concomitant]
     Active Substance: RAMIPRIL
     Indication: PRODUCT USED FOR UNKNOWN INDICATION
     Dosage: 2.5 MILLIGRAM
     Route: 048
     Dates: start: 20090110
  7. L THYROXIN [Concomitant]
     Active Substance: LEVOTHYROXINE SODIUM
     Indication: PRODUCT USED FOR UNKNOWN INDICATION
     Dosage: 125 MICROGRAM
     Route: 048
     Dates: start: 20210325
  8. PEMBROLIZUMAB (MK?3475) [Suspect]
     Active Substance: PEMBROLIZUMAB
     Indication: NON-SMALL CELL LUNG CANCER STAGE IV
     Dosage: 200 MILLIGRAM
     Route: 042
     Dates: start: 20210212, end: 20210331
  9. PEMBROLIZUMAB (MK?3475) [Suspect]
     Active Substance: PEMBROLIZUMAB
     Dosage: 200 MILLIGRAM
     Route: 042
     Dates: start: 20210422, end: 20210422
  10. CARBOPLATIN. [Suspect]
     Active Substance: CARBOPLATIN
     Dosage: AUC 6MG/ML/MIN
     Route: 042
     Dates: start: 20210422, end: 20210422
  11. PANTOZOLE [Concomitant]
     Active Substance: PANTOPRAZOLE SODIUM
     Indication: PROPHYLAXIS OF NAUSEA AND VOMITING
     Dosage: 100 MILLIGRAM
     Route: 048
     Dates: start: 20210110
  12. CETIRIZIN [Concomitant]
     Active Substance: CETIRIZINE HYDROCHLORIDE
     Indication: RASH
     Dosage: 10 MILLIGRAM
     Route: 048
     Dates: start: 20210304
  13. OLIMEL [Concomitant]
     Active Substance: AMINO ACIDS\DEXTROSE\SOYBEAN OIL
     Indication: WEIGHT DECREASED
     Dosage: 1000 MILLILITER
     Route: 042
     Dates: start: 20210427
  14. LEVOFLOXACIN. [Concomitant]
     Active Substance: LEVOFLOXACIN
     Indication: INFECTION
     Dosage: 250 MILLIGRAM
     Route: 048
     Dates: start: 20210427
  15. ABRAXANE [Suspect]
     Active Substance: PACLITAXEL
     Route: 041
     Dates: start: 20210506, end: 20210506
  16. LEVOFLOXACIN. [Concomitant]
     Active Substance: LEVOFLOXACIN
     Dosage: 250 MILLIGRAM
     Route: 048
     Dates: start: 20210514
  17. ABRAXANE [Suspect]
     Active Substance: PACLITAXEL
     Indication: NON-SMALL CELL LUNG CANCER STAGE IV
     Route: 041
     Dates: start: 20210212, end: 20210429
  18. CHOLECALCIFEROL [Concomitant]
     Active Substance: CHOLECALCIFEROL
     Indication: PROPHYLAXIS
     Dosage: 20000 IU (INTERNATIONAL UNIT)
     Route: 048
     Dates: start: 20210110

REACTIONS (1)
  - Acute kidney injury [Unknown]

NARRATIVE: CASE EVENT DATE: 20210526
